FAERS Safety Report 20807323 (Version 1)
Quarter: 2022Q2

REPORT INFORMATION
  Report Type: Spontaneous
  Country: US (occurrence: None)
  Receive Date: 20220509
  Receipt Date: 20220509
  Transmission Date: 20220721
  Serious: Yes (Other)
  Sender: FDA-Public Use
  Company Number: None

PATIENT
  Age: 87 Year
  Sex: Male
  Weight: 83.91 kg

DRUGS (2)
  1. NIRMATRELVIR\RITONAVIR [Suspect]
     Active Substance: NIRMATRELVIR\RITONAVIR
     Indication: Upper respiratory tract infection
     Dosage: OTHER QUANTITY : 150MG/100MG;?FREQUENCY : TWICE A DAY;?
     Route: 048
     Dates: start: 20220407, end: 20220408
  2. NIRMATRELVIR\RITONAVIR [Suspect]
     Active Substance: NIRMATRELVIR\RITONAVIR
     Indication: COVID-19

REACTIONS (6)
  - Nausea [None]
  - Confusional state [None]
  - Aggression [None]
  - Hallucinations, mixed [None]
  - Nightmare [None]
  - Vomiting [None]

NARRATIVE: CASE EVENT DATE: 20220407
